FAERS Safety Report 24361473 (Version 1)
Quarter: 2024Q3

REPORT INFORMATION
  Report Type: Spontaneous
  Country: US (occurrence: US)
  Receive Date: 20240925
  Receipt Date: 20240925
  Transmission Date: 20241017
  Serious: Yes (Hospitalization)
  Sender: BRISTOL MYERS SQUIBB
  Company Number: US-BRISTOL-MYERS SQUIBB COMPANY-2024-148047

PATIENT
  Age: 54 Year
  Sex: Female

DRUGS (1)
  1. SPRYCEL [Suspect]
     Active Substance: DASATINIB
     Indication: Immunodeficiency
     Dosage: ONCE DAILY
     Route: 048
     Dates: start: 202405

REACTIONS (3)
  - Gallbladder disorder [Unknown]
  - Urinary tract infection [Unknown]
  - Off label use [Unknown]
